FAERS Safety Report 10868340 (Version 1)
Quarter: 2015Q1

REPORT INFORMATION
  Report Type: Spontaneous
  Country: US (occurrence: US)
  Receive Date: 20150225
  Receipt Date: 20150225
  Transmission Date: 20150721
  Serious: Yes (Hospitalization)
  Sender: FDA-Public Use
  Company Number: US-BAYER-2015-022294

PATIENT
  Age: 85 Year
  Sex: Female
  Weight: 68 kg

DRUGS (5)
  1. BAYER GENUINE ASPIRIN [Suspect]
     Active Substance: ASPIRIN
     Indication: PYREXIA
     Dosage: 1 DF, ONCE
     Route: 048
     Dates: start: 2014, end: 2014
  2. BAYER LOW DOSE [Concomitant]
     Active Substance: ASPIRIN
     Dosage: 1 DF, QD
  3. LISINOPRIL. [Concomitant]
     Active Substance: LISINOPRIL
  4. CENTRUM SILVER [Concomitant]
     Active Substance: VITAMINS
  5. ALEVE [Suspect]
     Active Substance: NAPROXEN SODIUM
     Indication: IMPLANT SITE PAIN
     Dosage: 1 DF, QD
     Route: 048
     Dates: start: 2014, end: 2014

REACTIONS (6)
  - Fall [Recovered/Resolved]
  - Nightmare [Recovered/Resolved]
  - Head injury [Recovered/Resolved]
  - Hypoaesthesia [Recovered/Resolved]
  - Joint injury [Recovered/Resolved]
  - Asthenia [Recovered/Resolved]

NARRATIVE: CASE EVENT DATE: 2014
